FAERS Safety Report 24731544 (Version 1)
Quarter: 2024Q4

REPORT INFORMATION
  Report Type: Spontaneous
  Country: US (occurrence: None)
  Receive Date: 20241212
  Receipt Date: 20241212
  Transmission Date: 20250114
  Serious: Yes (Other)
  Sender: Public
  Company Number: None

PATIENT
  Age: 41 Year
  Sex: Female
  Weight: 82.35 kg

DRUGS (7)
  1. OZEMPIC [Suspect]
     Active Substance: SEMAGLUTIDE
     Indication: Weight decreased
     Dates: start: 20241107, end: 20241122
  2. PROBIOTICS NOS [Concomitant]
     Active Substance: PROBIOTICS NOS
  3. VITAMIN D [Concomitant]
     Active Substance: VITAMIN D NOS
  4. VITAMINS [Concomitant]
     Active Substance: VITAMINS
  5. COENZYME Q10 [Concomitant]
     Active Substance: DIETARY SUPPLEMENT\UBIDECARENONE
  6. MELATONIN [Concomitant]
     Active Substance: MELATONIN
  7. MAGNESIUM GLYCINATE [Concomitant]
     Active Substance: MAGNESIUM GLYCINATE

REACTIONS (11)
  - Anxiety [None]
  - Depression [None]
  - Fatigue [None]
  - Insomnia [None]
  - Suicidal ideation [None]
  - Somnolence [None]
  - Vomiting [None]
  - Diarrhoea [None]
  - Mood swings [None]
  - Initial insomnia [None]
  - Terminal insomnia [None]

NARRATIVE: CASE EVENT DATE: 20241210
